FAERS Safety Report 9198851 (Version 1)
Quarter: 2013Q1

REPORT INFORMATION
  Report Type: Spontaneous
  Country: US (occurrence: US)
  Receive Date: 20130329
  Receipt Date: 20130329
  Transmission Date: 20140127
  Serious: Yes (Other)
  Sender: FDA-Public Use
  Company Number: US-009507513-1303USA013122

PATIENT
  Age: 21 Year
  Sex: Male

DRUGS (2)
  1. SAPHRIS [Suspect]
     Route: 060
  2. ZYPREXA [Concomitant]

REACTIONS (1)
  - Aggression [Unknown]
